FAERS Safety Report 6864533-0 (Version None)
Quarter: 2010Q3

REPORT INFORMATION
  Report Type: 
  Country: None (occurrence: None)
  Receive Date: 20100721
  Receipt Date: 20080327
  Transmission Date: 20110219
  Serious: No
  Sender: FDA-Public Use
  Company Number: US-PFIZER INC-2008028000

PATIENT
  Sex: Male
  Weight: 104.5 kg

DRUGS (3)
  1. CHANTIX [Suspect]
     Indication: SMOKING CESSATION THERAPY
     Route: 048
     Dates: start: 20071005, end: 20071006
  2. DEXTROAMPHETAMINE [Concomitant]
     Route: 048
  3. TAMSULOSIN HYDROCHLORIDE [Concomitant]
     Route: 048

REACTIONS (1)
  - INFLUENZA LIKE ILLNESS [None]
